FAERS Safety Report 5316614-0 (Version None)
Quarter: 2007Q2

REPORT INFORMATION
  Report Type: 
  Country: None (occurrence: None)
  Receive Date: 20070504
  Receipt Date: 20070423
  Transmission Date: 20071010
  Serious: Yes (Hospitalization)
  Sender: FDA-Public Use
  Company Number: HQWYE801524APR07

PATIENT
  Sex: Female

DRUGS (2)
  1. EFFEXOR [Suspect]
     Indication: DEPRESSION
     Dosage: 150 MG, FREQUENCY NOT SPECIFIED
     Route: 048
     Dates: end: 19950101
  2. METHADONE HCL [Interacting]
     Indication: ANALGESIC EFFECT
     Dosage: UNKNOWN
     Route: 065
     Dates: start: 19950101

REACTIONS (2)
  - DRUG INTERACTION [None]
  - HALLUCINATION, AUDITORY [None]
